FAERS Safety Report 5747823-4 (Version None)
Quarter: 2008Q2

REPORT INFORMATION
  Report Type: 
  Country: None (occurrence: None)
  Receive Date: 20080523
  Receipt Date: 20080516
  Transmission Date: 20081010
  Serious: Yes (Hospitalization)
  Sender: FDA-Public Use
  Company Number: B0520948A

PATIENT
  Age: 76 Year
  Sex: Female

DRUGS (10)
  1. ARIXTRA [Suspect]
     Indication: DRUG USE FOR UNKNOWN INDICATION
     Route: 058
     Dates: start: 20080201, end: 20080218
  2. ASPIRIN [Suspect]
     Indication: DRUG USE FOR UNKNOWN INDICATION
     Route: 048
     Dates: start: 20080201, end: 20080218
  3. MICARDIS [Concomitant]
     Route: 065
  4. ZANIDIP [Concomitant]
     Route: 065
  5. DIAMICRON [Concomitant]
     Route: 065
  6. PANTOPRAZOLE SODIUM [Concomitant]
     Route: 065
  7. FENOFIBRATE [Concomitant]
     Route: 065
  8. BROMAZEPAM [Concomitant]
     Route: 065
  9. BUFLOMEDIL [Concomitant]
     Route: 065
  10. CELEBREX [Concomitant]
     Route: 065

REACTIONS (7)
  - COMA [None]
  - FALL [None]
  - GLASGOW COMA SCALE ABNORMAL [None]
  - HEAD INJURY [None]
  - NEUROLOGICAL SYMPTOM [None]
  - PUPILS UNEQUAL [None]
  - SUBDURAL HAEMATOMA [None]
